FAERS Safety Report 21617158 (Version 1)
Quarter: 2022Q4

REPORT INFORMATION
  Report Type: Report from Study
  Country: US (occurrence: US)
  Receive Date: 20221118
  Receipt Date: 20221118
  Transmission Date: 20230112
  Serious: Yes (Death, Life-Threatening, Hospitalization)
  Sender: FDA-Public Use
  Company Number: US-SEATTLE GENETICS-2022SGN10829

PATIENT
  Age: 62 Year
  Sex: Male
  Weight: 91.4 kg

DRUGS (29)
  1. BRENTUXIMAB VEDOTIN [Suspect]
     Active Substance: BRENTUXIMAB VEDOTIN
     Indication: Non-small cell lung cancer metastatic
     Dosage: 1.8 MG/KG, Q21D
     Route: 042
     Dates: start: 20221107, end: 20221107
  2. PEMBROLIZUMAB [Suspect]
     Active Substance: PEMBROLIZUMAB
     Indication: Non-small cell lung cancer metastatic
     Dosage: 200 MG, Q21D
     Route: 042
     Dates: start: 20221107, end: 20221107
  3. ACETAMINOPHEN [Concomitant]
     Active Substance: ACETAMINOPHEN
     Indication: Arthralgia
     Dosage: 500 MG, PRN
     Route: 048
     Dates: start: 2002
  4. ACETAMINOPHEN [Concomitant]
     Active Substance: ACETAMINOPHEN
     Indication: Headache
  5. ACETAMINOPHEN [Concomitant]
     Active Substance: ACETAMINOPHEN
     Indication: Arthritis
  6. MIRALAX [Concomitant]
     Active Substance: POLYETHYLENE GLYCOL 3350
     Indication: Constipation
     Dosage: 17 G, PRN
     Route: 048
     Dates: start: 20220714
  7. MAGNESIUM CITRATE [Concomitant]
     Active Substance: MAGNESIUM CITRATE
     Indication: Constipation
     Dosage: 250 MG, PRN
     Route: 048
     Dates: start: 20220714
  8. COLACE [Concomitant]
     Active Substance: DOCUSATE SODIUM
     Indication: Constipation
     Dosage: 100 MG, PRN
     Route: 048
     Dates: start: 20220714
  9. MELATONIN [Concomitant]
     Active Substance: MELATONIN
     Indication: Insomnia
     Dosage: 5 MG, QHS, PRN
     Route: 048
     Dates: start: 2020
  10. ATIVAN [Concomitant]
     Active Substance: LORAZEPAM
     Indication: Nausea
     Dosage: 0.5 MG, BID, PRN
     Route: 048
     Dates: start: 20220714
  11. ATIVAN [Concomitant]
     Active Substance: LORAZEPAM
     Indication: Vomiting
  12. NEXIUM I.V. [Concomitant]
     Active Substance: ESOMEPRAZOLE SODIUM
     Indication: Nausea
     Dosage: 40 MG, QD, PRN
     Route: 048
     Dates: start: 20220714
  13. NEXIUM I.V. [Concomitant]
     Active Substance: ESOMEPRAZOLE SODIUM
     Indication: Vomiting
  14. ZOFRAN [Concomitant]
     Active Substance: ONDANSETRON HYDROCHLORIDE
     Indication: Nausea
     Dosage: 8 MG, Q8 HOURS, PRN
     Route: 048
     Dates: start: 20220714
  15. ZOFRAN [Concomitant]
     Active Substance: ONDANSETRON HYDROCHLORIDE
     Indication: Vomiting
  16. COMPAZINE [Concomitant]
     Active Substance: PROCHLORPERAZINE MALEATE
     Indication: Nausea
     Dosage: 10 MG, Q6 HOURS, PRN
     Route: 048
     Dates: start: 20220714
  17. COMPAZINE [Concomitant]
     Active Substance: PROCHLORPERAZINE MALEATE
     Indication: Vomiting
  18. BACLOFEN [Concomitant]
     Active Substance: BACLOFEN
     Indication: Hiccups
     Dosage: 5 MG, TID, PRN
     Route: 048
     Dates: start: 20220901
  19. ELIQUIS [Concomitant]
     Active Substance: APIXABAN
     Indication: Thrombosis prophylaxis
     Dosage: 5 MG, QD
     Route: 048
     Dates: start: 20220509
  20. PROSCAR [Concomitant]
     Active Substance: FINASTERIDE
     Indication: Benign prostatic hyperplasia
     Dosage: 5 MG, QD
     Route: 048
     Dates: start: 2018
  21. LEVOTHYROXINE [Concomitant]
     Active Substance: LEVOTHYROXINE
     Indication: Hypothyroidism
     Dosage: 100 MG, QD
     Route: 048
     Dates: start: 20200403
  22. PRAVASTATIN [Concomitant]
     Active Substance: PRAVASTATIN
     Indication: Hyperlipidaemia
     Dosage: 10 MG, QD
     Route: 048
     Dates: start: 2017
  23. ALLOPURINOL [Concomitant]
     Active Substance: ALLOPURINOL
     Indication: Prophylaxis
     Dosage: 200 MG, QD
     Route: 048
     Dates: start: 2017
  24. VITAMIN D3 [Concomitant]
     Active Substance: CHOLECALCIFEROL
     Indication: Routine health maintenance
     Dosage: 10000 IU, 3/WEEK
     Route: 048
     Dates: start: 2020
  25. IRON [Concomitant]
     Active Substance: IRON
     Indication: Routine health maintenance
     Dosage: 65 MG, QD
     Route: 048
     Dates: start: 2020
  26. VITAMINS NOS [Concomitant]
     Active Substance: VITAMINS
     Indication: Routine health maintenance
     Dosage: 1 TAB, QD
     Route: 048
     Dates: start: 2020
  27. VITAMIN C [Concomitant]
     Active Substance: ASCORBIC ACID
     Indication: Routine health maintenance
     Dosage: 1 G, QD
     Route: 048
     Dates: start: 2020
  28. DARBEPOETIN ALFA [Concomitant]
     Active Substance: DARBEPOETIN ALFA
     Indication: Prophylaxis
     Dosage: 300 ?G, ONCE
     Route: 058
     Dates: start: 20221101, end: 20221101
  29. OXYCODONE [Concomitant]
     Active Substance: OXYCODONE
     Indication: Abdominal pain
     Dosage: 5 MG, Q4-6 HOURS, PRN
     Route: 048
     Dates: start: 20221111

REACTIONS (2)
  - Acute kidney injury [Fatal]
  - Respiratory failure [Fatal]

NARRATIVE: CASE EVENT DATE: 20221113
